FAERS Safety Report 7901776-9 (Version None)
Quarter: 2011Q4

REPORT INFORMATION
  Report Type: 
  Country: None (occurrence: None)
  Receive Date: 20111108
  Receipt Date: 20111025
  Transmission Date: 20120403
  Serious: Yes (Other)
  Sender: FDA-Public Use
  Company Number: PHHY2011FR94855

PATIENT
  Sex: Female

DRUGS (3)
  1. PROTON THERAPY [Suspect]
  2. SANDOSTATIN LAR [Suspect]
     Indication: PITUITARY TUMOUR BENIGN
     Dosage: 30 MG, MONTHLY
  3. CABERGOLINE [Suspect]
     Dosage: 1 MG, PER WEEK

REACTIONS (3)
  - VISUAL IMPAIRMENT [None]
  - NEOPLASM MALIGNANT [None]
  - INSULIN-LIKE GROWTH FACTOR INCREASED [None]
